FAERS Safety Report 5381320-3 (Version None)
Quarter: 2007Q2

REPORT INFORMATION
  Report Type: 
  Country: None (occurrence: None)
  Receive Date: 20070629
  Receipt Date: 20070314
  Transmission Date: 20071010
  Serious: Yes (Other)
  Sender: FDA-Public Use
  Company Number: HQWYE152119MAR07

PATIENT
  Age: 75 Year
  Sex: Female
  Weight: 74.91 kg

DRUGS (3)
  1. AXID AR [Suspect]
     Indication: DYSPEPSIA
     Dosage: 1 TABLET 1 X PER 1 DAY, ORAL
     Route: 048
     Dates: start: 20070201, end: 20070301
  2. PLAVIX [Concomitant]
  3. NORVASC [Concomitant]

REACTIONS (2)
  - DIZZINESS [None]
  - PHARMACEUTICAL PRODUCT COMPLAINT [None]
